FAERS Safety Report 11461802 (Version 1)
Quarter: 2015Q3

REPORT INFORMATION
  Report Type: Spontaneous
  Country: US (occurrence: US)
  Receive Date: 20150831
  Receipt Date: 20150831
  Transmission Date: 20151125
  Serious: No
  Sender: FDA-Public Use
  Company Number: US-ELI_LILLY_AND_COMPANY-US201008008021

PATIENT
  Sex: Female

DRUGS (1)
  1. CYMBALTA [Suspect]
     Active Substance: DULOXETINE HYDROCHLORIDE
     Indication: DEPRESSION
     Dosage: 30 MG, DAILY (1/D)

REACTIONS (7)
  - Hyperhidrosis [Unknown]
  - Food craving [Unknown]
  - Feeling hot [Unknown]
  - Increased appetite [Unknown]
  - Blood pressure increased [Unknown]
  - Paraesthesia [Unknown]
  - Dyspepsia [Unknown]
